FAERS Safety Report 7001326-8 (Version None)
Quarter: 2010Q3

REPORT INFORMATION
  Report Type: 
  Country: None (occurrence: None)
  Receive Date: 20100920
  Receipt Date: 20100507
  Transmission Date: 20110219
  Serious: No
  Sender: FDA-Public Use
  Company Number: US-ASTRAZENECA-2010SE20968

PATIENT
  Sex: Female
  Weight: 63.5 kg

DRUGS (6)
  1. SEROQUEL [Suspect]
     Indication: SLEEP DISORDER
     Route: 048
     Dates: start: 20060101, end: 20090101
  2. SEROQUEL [Suspect]
     Indication: BIPOLAR DISORDER
     Route: 048
     Dates: start: 20060101, end: 20090101
  3. SEROQUEL [Suspect]
     Route: 048
     Dates: start: 20090101, end: 20100401
  4. SEROQUEL [Suspect]
     Route: 048
     Dates: start: 20090101, end: 20100401
  5. SEROQUEL [Suspect]
     Route: 048
  6. SEROQUEL [Suspect]
     Route: 048

REACTIONS (2)
  - MOOD ALTERED [None]
  - MOOD SWINGS [None]
